FAERS Safety Report 4493840-4 (Version None)
Quarter: 2004Q4

REPORT INFORMATION
  Report Type: 
  Country: None (occurrence: None)
  Receive Date: 20041102
  Receipt Date: 20041022
  Transmission Date: 20050328
  Serious: Yes (Life-Threatening, Other)
  Sender: FDA-Public Use
  Company Number: 2004226386GB

PATIENT
  Age: 21 Year
  Sex: Female

DRUGS (6)
  1. ZYVOX [Suspect]
     Indication: STAPHYLOCOCCAL SEPSIS
     Dosage: 600 MG, BID, IV
     Route: 042
     Dates: start: 20040719, end: 20040726
  2. HYDROCORTISONE [Concomitant]
  3. PANTOPRAZOLE [Concomitant]
  4. METOCLOPRAMIDE [Concomitant]
  5. CIPROFLOXACIN [Concomitant]
  6. LOPERAMIDE HCL [Concomitant]

REACTIONS (5)
  - BARTTER'S SYNDROME [None]
  - CARDIAC ARREST [None]
  - DIARRHOEA [None]
  - MARKEDLY REDUCED DIETARY INTAKE [None]
  - RESPIRATORY ARREST [None]
